FAERS Safety Report 11957131 (Version 4)
Quarter: 2017Q1

REPORT INFORMATION
  Report Type: Spontaneous
  Country: US (occurrence: US)
  Receive Date: 20160126
  Receipt Date: 20170321
  Transmission Date: 20170428
  Serious: Yes (Hospitalization)
  Sender: FDA-Public Use
  Company Number: US-ACTELION-A-NJ2016-130318

PATIENT
  Age: 61 Year
  Sex: Female
  Weight: 49.43 kg

DRUGS (2)
  1. NIFEDIPINE. [Concomitant]
     Active Substance: NIFEDIPINE
  2. VELETRI [Suspect]
     Active Substance: EPOPROSTENOL
     Indication: PULMONARY ARTERIAL HYPERTENSION
     Dosage: 45 NG/KG, PER MIN
     Route: 042
     Dates: start: 201002

REACTIONS (8)
  - Asthenia [Not Recovered/Not Resolved]
  - Swelling [Unknown]
  - Device alarm issue [Unknown]
  - Device issue [Unknown]
  - Acute kidney injury [Not Recovered/Not Resolved]
  - Respiratory distress [Unknown]
  - Hypotension [Not Recovered/Not Resolved]
  - Urinary tract infection [Unknown]
